FAERS Safety Report 8974293 (Version 1)
Quarter: 2012Q4

REPORT INFORMATION
  Report Type: Spontaneous
  Country: US (occurrence: None)
  Receive Date: 20121217
  Receipt Date: 20121217
  Transmission Date: 20130627
  Serious: Yes (Disabling, Other)
  Sender: FDA-Public Use
  Company Number: None

PATIENT
  Age: 61 Year
  Sex: Female
  Weight: 70.31 kg

DRUGS (2)
  1. LEVOFLOXACIN [Suspect]
     Indication: SINUS INFECTION
     Dosage: 1 oer day
     Dates: start: 20121206, end: 20121214
  2. LEVOFLOXACIN [Suspect]
     Indication: BLADDER INFECTION
     Dosage: 1 oer day
     Dates: start: 20121206, end: 20121214

REACTIONS (4)
  - Hypoaesthesia [None]
  - Musculoskeletal pain [None]
  - Arthralgia [None]
  - Musculoskeletal stiffness [None]
